FAERS Safety Report 11836086 (Version 1)
Quarter: 2015Q4

REPORT INFORMATION
  Report Type: Spontaneous
  Country: ES (occurrence: ES)
  Receive Date: 20151215
  Receipt Date: 20151215
  Transmission Date: 20160305
  Serious: Yes (Death, Other)
  Sender: FDA-Public Use
  Company Number: ES-HERITAGE PHARMACEUTICALS-2015HTG00074

PATIENT
  Age: 48 Year
  Sex: Female
  Weight: 70 kg

DRUGS (3)
  1. GLYBURIDE. [Suspect]
     Active Substance: GLYBURIDE
     Dosage: 150 MG, UNK
     Route: 048
  2. IBUPROFEN. [Suspect]
     Active Substance: IBUPROFEN
     Dosage: UNK
     Route: 048
  3. LORAZEPAM. [Suspect]
     Active Substance: LORAZEPAM
     Dosage: 50 MG, UNK
     Route: 048

REACTIONS (7)
  - Hypoglycaemia [Fatal]
  - Completed suicide [Fatal]
  - Brain death [Not Recovered/Not Resolved]
  - Hypoxic-ischaemic encephalopathy [None]
  - Toxicity to various agents [Fatal]
  - Coma [Not Recovered/Not Resolved]
  - Brain oedema [Fatal]
